FAERS Safety Report 17104001 (Version 1)
Quarter: 2019Q4

REPORT INFORMATION
  Report Type: Spontaneous
  Country: US (occurrence: US)
  Receive Date: 20191107
  Receipt Date: 20191107
  Transmission Date: 20200122
  Serious: Yes (Hospitalization)
  Sender: FDA-Public Use
  Company Number: None

PATIENT
  Sex: Male

DRUGS (4)
  1. STELARA [Suspect]
     Active Substance: USTEKINUMAB
     Indication: CROHN^S DISEASE
     Route: 058
     Dates: start: 20190505
  2. PREDNISONE. [Concomitant]
     Active Substance: PREDNISONE
  3. MERCAPTOPUR [Concomitant]
  4. FOLIC ACID. [Concomitant]
     Active Substance: FOLIC ACID

REACTIONS (2)
  - Diarrhoea [None]
  - Pyrexia [None]
